FAERS Safety Report 6568196-3 (Version None)
Quarter: 2010Q1

REPORT INFORMATION
  Report Type: 
  Country: None (occurrence: None)
  Receive Date: 20100203
  Receipt Date: 20100127
  Transmission Date: 20100710
  Serious: Yes (Hospitalization)
  Sender: FDA-Public Use
  Company Number: FR-WYE-H13292210

PATIENT
  Age: 91 Year
  Sex: Male

DRUGS (7)
  1. AMIODARONE HCL [Suspect]
     Route: 048
  2. MEMANTINE HCL [Suspect]
     Route: 048
  3. TEMESTA [Concomitant]
     Dosage: NOT PROVIDED
  4. LANSOPRAZOLE [Suspect]
     Route: 048
  5. DISULONE [Suspect]
     Indication: DERMATITIS HERPETIFORMIS
     Dosage: 1 UNIT EVERY 1 DAY
     Route: 048
     Dates: start: 19940101, end: 20090801
  6. FUROSEMIDE [Suspect]
     Route: 048
  7. RISPERDAL [Suspect]
     Route: 048

REACTIONS (3)
  - ANAEMIA MACROCYTIC [None]
  - HAEMOLYTIC ANAEMIA [None]
  - RENAL IMPAIRMENT [None]
